FAERS Safety Report 6661557-3 (Version None)
Quarter: 2010Q1

REPORT INFORMATION
  Report Type: 
  Country: None (occurrence: None)
  Receive Date: 20100329
  Receipt Date: 20100318
  Transmission Date: 20100710
  Serious: Yes (Other)
  Sender: FDA-Public Use
  Company Number: 232869J10USA

PATIENT
  Age: 67 Year
  Sex: Male

DRUGS (4)
  1. REBIF [Suspect]
     Indication: MULTIPLE SCLEROSIS
     Dosage: 44 MCG, 3 IN 1 WEEKS, SUBCUTANEOUS
     Route: 058
     Dates: start: 20090819
  2. PROVIGIL [Concomitant]
  3. BACLOFEN [Concomitant]
  4. REQUIP (ROPINIROL HYDROCHLORIDE) [Concomitant]

REACTIONS (1)
  - ATRIAL FLUTTER [None]
